FAERS Safety Report 8423443-8 (Version None)
Quarter: 2012Q2

REPORT INFORMATION
  Report Type: 
  Country: None (occurrence: None)
  Receive Date: 20120608
  Receipt Date: 20120601
  Transmission Date: 20120825
  Serious: Yes (Other)
  Sender: FDA-Public Use
  Company Number: CO-GENZYME-CERZ-1002521

PATIENT
  Sex: Male
  Weight: 9 kg

DRUGS (1)
  1. CEREZYME [Suspect]
     Indication: GAUCHER'S DISEASE
     Dosage: 4 VIALS/MONTH
     Route: 042
     Dates: start: 20110103

REACTIONS (1)
  - RESPIRATORY DISORDER [None]
